FAERS Safety Report 4658758-2 (Version None)
Quarter: 2005Q2

REPORT INFORMATION
  Report Type: 
  Country: None (occurrence: None)
  Receive Date: 20050509
  Receipt Date: 20050427
  Transmission Date: 20051028
  Serious: Yes (Hospitalization)
  Sender: FDA-Public Use
  Company Number: 05H-122-0297678-00

PATIENT
  Age: 20 Year
  Sex: Female

DRUGS (6)
  1. PENTOTHAL SODIUM [Suspect]
     Indication: GENERAL ANAESTHESIA
     Dosage: 325 MG, 275 MG, 300 MG, 500 MG, INTRAVENOUS
     Route: 042
     Dates: start: 20050314, end: 20050314
  2. PENTOTHAL SODIUM [Suspect]
     Indication: GENERAL ANAESTHESIA
     Dosage: 325 MG, 275 MG, 300 MG, 500 MG, INTRAVENOUS
     Route: 042
     Dates: start: 20050225
  3. PENTOTHAL SODIUM [Suspect]
     Indication: GENERAL ANAESTHESIA
     Dosage: 325 MG, 275 MG, 300 MG, 500 MG, INTRAVENOUS
     Route: 042
     Dates: start: 20050228
  4. PENTOTHAL SODIUM [Suspect]
     Indication: GENERAL ANAESTHESIA
     Dosage: 325 MG, 275 MG, 300 MG, 500 MG, INTRAVENOUS
     Route: 042
     Dates: start: 20050302
  5. PENTOTHAL SODIUM [Suspect]
     Indication: GENERAL ANAESTHESIA
     Dosage: 325 MG, 275 MG, 300 MG, 500 MG, INTRAVENOUS
     Route: 042
     Dates: start: 20050304
  6. PENTOTHAL SODIUM [Suspect]
     Indication: GENERAL ANAESTHESIA
     Dosage: 325 MG, 275 MG, 300 MG, 500 MG, INTRAVENOUS
     Route: 042
     Dates: start: 20050307

REACTIONS (2)
  - AGRANULOCYTOSIS [None]
  - PYREXIA [None]
